FAERS Safety Report 25319181 (Version 2)
Quarter: 2025Q3

REPORT INFORMATION
  Report Type: Spontaneous
  Country: MX (occurrence: MX)
  Receive Date: 20250515
  Receipt Date: 20250802
  Transmission Date: 20251021
  Serious: Yes (Other)
  Sender: ALEXION PHARMACEUTICALS
  Company Number: MX-AstraZeneca-CH-00869182A

PATIENT
  Sex: Male

DRUGS (1)
  1. DAPAGLIFLOZIN [Suspect]
     Active Substance: DAPAGLIFLOZIN
     Indication: Diabetes mellitus
     Route: 065

REACTIONS (2)
  - Blindness [Unknown]
  - Weight decreased [Unknown]
